FAERS Safety Report 6765198-9 (Version None)
Quarter: 2010Q2

REPORT INFORMATION
  Report Type: 
  Country: None (occurrence: None)
  Receive Date: 20100610
  Receipt Date: 20100610
  Transmission Date: 20101027
  Serious: No
  Sender: FDA-Public Use
  Company Number: None

PATIENT
  Sex: Male
  Weight: 83.9154 kg

DRUGS (1)
  1. BUPROPION HCL [Suspect]

REACTIONS (3)
  - BURNING SENSATION [None]
  - FEELING HOT [None]
  - RASH [None]
